FAERS Safety Report 8745665 (Version 7)
Quarter: 2013Q2

REPORT INFORMATION
  Report Type: Spontaneous
  Country: US (occurrence: US)
  Receive Date: 20120826
  Receipt Date: 20130522
  Transmission Date: 20140414
  Serious: Yes (Hospitalization, Other)
  Sender: FDA-Public Use
  Company Number: US-009507513-1208USA007485

PATIENT
  Sex: Female
  Weight: 58.5 kg

DRUGS (6)
  1. FOSAMAX [Suspect]
     Indication: OSTEOPOROSIS
     Dosage: 10 MG, UNK
     Route: 048
     Dates: start: 1995, end: 200111
  2. FOSAMAX [Suspect]
     Indication: OSTEOPENIA
     Dosage: 70 MG, QW
     Route: 048
     Dates: start: 20011205, end: 20051208
  3. BONIVA [Suspect]
     Indication: OSTEOPOROSIS
     Dosage: 150 MG, UNK
     Dates: start: 200601, end: 201011
  4. BONIVA [Suspect]
     Indication: OSTEOPENIA
  5. VITAMINS (UNSPECIFIED) [Concomitant]
     Dosage: 1 DF, QD
     Route: 048
  6. HORMONES (UNSPECIFIED) [Concomitant]
     Dosage: UNK
     Dates: start: 1995

REACTIONS (43)
  - Intramedullary rod insertion [Unknown]
  - Fibula fracture [Unknown]
  - Foot fracture [Unknown]
  - Fall [Unknown]
  - Ilium fracture [Recovering/Resolving]
  - Anaemia postoperative [Unknown]
  - Transfusion [Unknown]
  - Osteonecrosis [Unknown]
  - Femur fracture [Recovered/Resolved]
  - Low turnover osteopathy [Unknown]
  - Tooth disorder [Unknown]
  - Endodontic procedure [Unknown]
  - Fall [Unknown]
  - Hypertension [Not Recovered/Not Resolved]
  - Foot fracture [Recovering/Resolving]
  - Accident at work [Unknown]
  - Joint injury [Unknown]
  - Scoliosis [Unknown]
  - Diverticulitis [Unknown]
  - Abscess [Unknown]
  - Benign breast neoplasm [Unknown]
  - Mitral valve prolapse [Unknown]
  - Tricuspid valve incompetence [Unknown]
  - Lactose intolerance [Unknown]
  - Migraine [Unknown]
  - Ligament rupture [Unknown]
  - Ligament sprain [Unknown]
  - Bursitis [Unknown]
  - Acute sinusitis [Unknown]
  - Tracheobronchitis [Unknown]
  - Otitis media [Unknown]
  - Epicondylitis [Unknown]
  - Rotator cuff syndrome [Unknown]
  - Foot fracture [Unknown]
  - Hypertension [Not Recovered/Not Resolved]
  - Pelvic fracture [Unknown]
  - Tendon operation [Unknown]
  - Lower limb fracture [Unknown]
  - Neck pain [Unknown]
  - Diarrhoea [Unknown]
  - Back pain [Unknown]
  - Neck pain [Not Recovered/Not Resolved]
  - Musculoskeletal pain [Unknown]
